FAERS Safety Report 7082593-1 (Version None)
Quarter: 2010Q3

REPORT INFORMATION
  Report Type: 
  Country: None (occurrence: None)
  Receive Date: 20100929
  Receipt Date: 20100624
  Transmission Date: 20110219
  Serious: No
  Sender: FDA-Public Use
  Company Number: US-WYE-H15925710

PATIENT
  Age: 48 Year
  Sex: Female
  Weight: 106.24 kg

DRUGS (4)
  1. PRISTIQ [Suspect]
     Indication: MAJOR DEPRESSION
     Dosage: 50 MG 1X PER 1 DAY, 50 MG 1X PER 1 DAY
     Dates: start: 20100101, end: 20100601
  2. PRISTIQ [Suspect]
     Indication: MAJOR DEPRESSION
     Dosage: 50 MG 1X PER 1 DAY, 50 MG 1X PER 1 DAY
     Dates: start: 20100623
  3. XANAX [Concomitant]
  4. RISPERDAL [Concomitant]

REACTIONS (5)
  - DRUG EFFECT DECREASED [None]
  - DRUG WITHDRAWAL SYNDROME [None]
  - INSOMNIA [None]
  - MAJOR DEPRESSION [None]
  - UNEVALUABLE EVENT [None]
